FAERS Safety Report 6520517-3 (Version None)
Quarter: 2009Q4

REPORT INFORMATION
  Report Type: 
  Country: None (occurrence: None)
  Receive Date: 20091229
  Receipt Date: 20091222
  Transmission Date: 20100525
  Serious: Yes (Life-Threatening, Hospitalization)
  Sender: FDA-Public Use
  Company Number: B0619370A

PATIENT
  Sex: Female

DRUGS (13)
  1. ARIXTRA [Suspect]
     Indication: CEREBROVASCULAR ACCIDENT
     Dosage: 2.5MG PER DAY
     Route: 058
     Dates: end: 20090904
  2. KARDEGIC [Suspect]
     Dosage: 160MG PER DAY
     Route: 048
     Dates: end: 20090904
  3. PLAVIX [Suspect]
     Indication: CEREBROVASCULAR ACCIDENT
     Dosage: 75MG PER DAY
     Route: 048
     Dates: end: 20090904
  4. TRACLEER [Concomitant]
     Indication: PULMONARY ARTERIAL HYPERTENSION
     Dosage: 125MG TWICE PER DAY
     Route: 048
  5. DEBRIDAT [Concomitant]
     Route: 048
  6. DOLIPRANE [Concomitant]
     Dosage: 1G THREE TIMES PER DAY
     Route: 048
  7. ATARAX [Concomitant]
     Dosage: 25MG PER DAY
     Route: 048
  8. DEPAKINE CHRONO [Concomitant]
     Dosage: 500MG TWICE PER DAY
     Route: 048
  9. SPECIAFOLDINE [Concomitant]
     Dosage: 5MG THREE TIMES PER DAY
     Route: 048
  10. CRESTOR [Concomitant]
     Dosage: 1UNIT TWICE PER DAY
     Route: 048
  11. GAVISCON [Concomitant]
     Dosage: 1UNIT THREE TIMES PER DAY
     Route: 048
  12. NITRODERM [Concomitant]
     Dosage: 5MG PER DAY
     Route: 062
  13. STILNOX [Concomitant]
     Route: 048

REACTIONS (6)
  - ANAEMIA [None]
  - C-REACTIVE PROTEIN INCREASED [None]
  - HAEMATEMESIS [None]
  - HYPOVOLAEMIC SHOCK [None]
  - MELAENA [None]
  - OESOPHAGITIS [None]
